FAERS Safety Report 21940222 (Version 1)
Quarter: 2023Q1

REPORT INFORMATION
  Report Type: Report from Study
  Country: US (occurrence: US)
  Receive Date: 20230201
  Receipt Date: 20230201
  Transmission Date: 20230417
  Serious: No
  Sender: FDA-Public Use
  Company Number: US-EXELIXIS-CABO-22050267

PATIENT
  Sex: Male

DRUGS (2)
  1. CABOMETYX [Suspect]
     Active Substance: CABOZANTINIB S-MALATE
     Indication: Neoplasm malignant
     Dosage: 60 MG, QD
     Route: 048
     Dates: start: 202203
  2. CABOMETYX [Suspect]
     Active Substance: CABOZANTINIB S-MALATE
     Dosage: 60 MG, QD (7 DAYS ON AND 7 DAYS OFF)
     Route: 048

REACTIONS (5)
  - Oropharyngeal pain [Unknown]
  - Musculoskeletal discomfort [Unknown]
  - Oral blood blister [Recovered/Resolved]
  - Oral disorder [Recovered/Resolved]
  - Inappropriate schedule of product administration [Unknown]
